FAERS Safety Report 25305689 (Version 1)
Quarter: 2025Q2

REPORT INFORMATION
  Report Type: Spontaneous
  Country: RU (occurrence: RU)
  Receive Date: 20250513
  Receipt Date: 20250513
  Transmission Date: 20250716
  Serious: Yes (Other)
  Sender: RANBAXY
  Company Number: RU-SUN PHARMACEUTICAL INDUSTRIES LTD-2025R1-506996

PATIENT
  Sex: Male
  Weight: 2 kg

DRUGS (14)
  1. URSODIOL [Suspect]
     Active Substance: URSODIOL
     Indication: Pancreatitis chronic
     Route: 064
  2. ENOXAPARIN SODIUM [Suspect]
     Active Substance: ENOXAPARIN SODIUM
     Indication: Anticoagulant therapy
     Route: 064
  3. INDAPAMIDE [Suspect]
     Active Substance: INDAPAMIDE
     Indication: Coronary artery disease
     Route: 064
  4. INDAPAMIDE [Suspect]
     Active Substance: INDAPAMIDE
     Indication: Hypertension
  5. ROSUVASTATIN [Suspect]
     Active Substance: ROSUVASTATIN
     Indication: Hypercholesterolaemia
     Route: 064
  6. PERINDOPRIL [Suspect]
     Active Substance: PERINDOPRIL
     Indication: Coronary artery disease
     Route: 064
  7. PERINDOPRIL [Suspect]
     Active Substance: PERINDOPRIL
     Indication: Hypertension
  8. METOPROLOL [Suspect]
     Active Substance: METOPROLOL
     Indication: Coronary artery disease
     Route: 064
  9. METOPROLOL [Suspect]
     Active Substance: METOPROLOL
     Indication: Hypertension
  10. ATORVASTATIN [Suspect]
     Active Substance: ATORVASTATIN
     Indication: Myocardial infarction
     Route: 064
  11. EZETIMIBE [Suspect]
     Active Substance: EZETIMIBE
     Indication: Myocardial infarction
     Route: 064
  12. ALIROCUMAB [Suspect]
     Active Substance: ALIROCUMAB
     Indication: Myocardial infarction
     Route: 064
  13. CARDIOMAGNYL [Suspect]
     Active Substance: ASPIRIN\MAGNESIUM HYDROXIDE
     Indication: Coronary artery disease
     Route: 064
  14. CARDIOMAGNYL [Suspect]
     Active Substance: ASPIRIN\MAGNESIUM HYDROXIDE
     Indication: Hypertension

REACTIONS (3)
  - Premature baby [Unknown]
  - Low birth weight baby [Unknown]
  - Foetal exposure during pregnancy [Unknown]
